FAERS Safety Report 24083714 (Version 1)
Quarter: 2024Q3

REPORT INFORMATION
  Report Type: Report from Study
  Country: IT (occurrence: IT)
  Receive Date: 20240712
  Receipt Date: 20240712
  Transmission Date: 20241017
  Serious: Yes (Hospitalization, Other)
  Sender: SERVIER
  Company Number: None

PATIENT

DRUGS (13)
  1. PEGASPARGASE [Suspect]
     Active Substance: PEGASPARGASE
     Indication: B-cell type acute leukaemia
     Dosage: 2500.00 IU
     Route: 042
     Dates: start: 20240507, end: 20240507
  2. DOXORUBICIN HYDROCHLORIDE [Suspect]
     Active Substance: DOXORUBICIN HYDROCHLORIDE
     Indication: B-cell type acute leukaemia
     Dosage: 30,00 MG INFUSION IN 100 ML NACL 0.9% IN 60 MIN. ON DATA 30/04
     Route: 042
     Dates: start: 20240430, end: 20240430
  3. DOXORUBICIN HYDROCHLORIDE [Suspect]
     Active Substance: DOXORUBICIN HYDROCHLORIDE
     Dosage: 30,00 MG INFUSION IN 100 ML NACL 0.9% IN 60 MIN. ON DATA 14/05
     Route: 042
     Dates: start: 20240514, end: 20240514
  4. DOXORUBICIN HYDROCHLORIDE [Suspect]
     Active Substance: DOXORUBICIN HYDROCHLORIDE
     Dosage: 30,00 MG INFUSION IN 100 ML NACL 0.9% IN 60 MIN. ON DATA 03/06/2024
     Route: 042
     Dates: start: 20240603, end: 20240603
  5. CYTARABINE [Suspect]
     Active Substance: CYTARABINE
     Indication: B-cell type acute leukaemia
     Dosage: 75,00 MG INFUSION IN 3 MIN.  SLOW BOLUS FROM DAY 12 TO DAY 15/06/2024
     Route: 042
     Dates: start: 20240612, end: 20240621
  6. CYCLOPHOSPHAMIDE [Suspect]
     Active Substance: CYCLOPHOSPHAMIDE
     Indication: B-cell type acute leukaemia
     Dosage: 1000,00 MG INFUSION IN 60 MIN.
     Route: 042
     Dates: start: 20240610, end: 20240610
  7. DOXORUBICIN HYDROCHLORIDE [Suspect]
     Active Substance: DOXORUBICIN HYDROCHLORIDE
     Indication: B-cell type acute leukaemia
     Dosage: 30,00 MG INFUSION IN 100 ML NACL 0.9% IN 60 MIN.
     Route: 042
     Dates: start: 20240507, end: 20240507
  8. DEXAMETHASONE SODIUM PHOSPHATE [Concomitant]
     Active Substance: DEXAMETHASONE PHOSPHATE\DEXAMETHASONE SODIUM PHOSPHATE
     Indication: B-cell type acute leukaemia
     Dosage: 10 MG, QD
     Route: 048
     Dates: start: 20240422, end: 20240512
  9. DEXAMETHASONE SODIUM PHOSPHATE [Concomitant]
     Active Substance: DEXAMETHASONE PHOSPHATE\DEXAMETHASONE SODIUM PHOSPHATE
     Dosage: 4.5 MG, QD
     Route: 048
     Dates: start: 20240513, end: 20240515
  10. DEXAMETHASONE SODIUM PHOSPHATE [Concomitant]
     Active Substance: DEXAMETHASONE PHOSPHATE\DEXAMETHASONE SODIUM PHOSPHATE
     Dosage: 2 MG, QD
     Route: 048
     Dates: start: 20240516, end: 20240518
  11. DEXAMETHASONE SODIUM PHOSPHATE [Concomitant]
     Active Substance: DEXAMETHASONE PHOSPHATE\DEXAMETHASONE SODIUM PHOSPHATE
     Dosage: 1 MG, QD
     Route: 048
     Dates: start: 20240519, end: 20240521
  12. ENOXAPARIN SODIUM [Concomitant]
     Active Substance: ENOXAPARIN SODIUM
     Indication: Thrombosis prophylaxis
     Dosage: 2000 UI X 2 VV/DAY
     Route: 058
     Dates: start: 20240430, end: 20240526
  13. LANSOPRAZOLE [Concomitant]
     Active Substance: LANSOPRAZOLE
     Indication: Prophylaxis against gastrointestinal ulcer
     Dosage: 30 MG/DAY
     Route: 048
     Dates: start: 20240422, end: 20240530

REACTIONS (6)
  - Febrile neutropenia [Recovering/Resolving]
  - Leukopenia [Recovering/Resolving]
  - Platelet disorder [Recovered/Resolved]
  - Hyperbilirubinaemia [Recovered/Resolved]
  - Hypoalbuminaemia [Recovered/Resolved]
  - Stomatitis [Recovered/Resolved]

NARRATIVE: CASE EVENT DATE: 20240517
